FAERS Safety Report 24698961 (Version 1)
Quarter: 2024Q4

REPORT INFORMATION
  Report Type: Spontaneous
  Country: US (occurrence: US)
  Receive Date: 20241205
  Receipt Date: 20241205
  Transmission Date: 20250114
  Serious: No
  Sender: ROCHE
  Company Number: US-ROCHE-10000146633

PATIENT
  Sex: Female

DRUGS (2)
  1. XOLAIR [Suspect]
     Active Substance: OMALIZUMAB
     Indication: Asthma
     Route: 058
     Dates: start: 202210
  2. STERILE WATER FOR INJECTION [Concomitant]
     Active Substance: WATER

REACTIONS (2)
  - Therapy change [Unknown]
  - Product dose omission issue [Unknown]
